FAERS Safety Report 9820016 (Version 1)
Quarter: 2013Q4

REPORT INFORMATION
  Report Type: Spontaneous
  Country: US (occurrence: None)
  Receive Date: 20131223
  Receipt Date: 20131223
  Transmission Date: 20140711
  Serious: No
  Sender: FDA-Public Use
  Company Number: 218319

PATIENT
  Age: 68 Year
  Sex: Male

DRUGS (2)
  1. PICATO (0.015 %, GEL) [Suspect]
     Indication: ACTINIC KERATOSIS
     Dosage: (1 IN 1 D), TOPICAL
     Route: 061
     Dates: start: 20120705, end: 20120707
  2. WELCHOL (COLESEVELAM HYDROCHLORIDE) (625 MILLIGRAM, TABLET) (COLESEVELAM HYDROCHLORIDE) [Concomitant]

REACTIONS (6)
  - Erythema [None]
  - Headache [None]
  - Skin burning sensation [None]
  - Skin irritation [None]
  - Skin exfoliation [None]
  - Dry skin [None]
